FAERS Safety Report 19799420 (Version 3)
Quarter: 2021Q4

REPORT INFORMATION
  Report Type: Other
  Country: US (occurrence: US)
  Receive Date: 20210907
  Receipt Date: 20211108
  Transmission Date: 20220303
  Serious: Yes (Hospitalization)
  Sender: FDA-Public Use
  Company Number: US-NEUROCRINE BIOSCIENCES INC.-2021NBI04906

PATIENT

DRUGS (15)
  1. INGREZZA [Suspect]
     Active Substance: VALBENAZINE
     Indication: Tardive dyskinesia
     Dosage: 80 MILLIGRAM, QD
     Route: 048
     Dates: start: 20200709
  2. INGREZZA [Suspect]
     Active Substance: VALBENAZINE
     Dosage: 40 MILLIGRAM, QD
     Route: 048
     Dates: start: 20200108, end: 20200709
  3. ALBUTEROL SULFATE [Concomitant]
     Active Substance: ALBUTEROL SULFATE
     Dosage: 180 MICROGRAM EVERY 6 HOURS AS NEEDED
  4. ABILIFY [Concomitant]
     Active Substance: ARIPIPRAZOLE
     Dosage: 5 MILLIGRAM, QD
     Route: 048
  5. ASPIRIN [Concomitant]
     Active Substance: ASPIRIN
     Dosage: 81 MILLIGRAM, QD
     Route: 048
  6. CHOLECALCIFEROL [Concomitant]
     Active Substance: CHOLECALCIFEROL
     Dosage: 1000 INTERNATIONAL UNIT, QD
     Route: 048
  7. KLONOPIN [Concomitant]
     Active Substance: CLONAZEPAM
     Dosage: 0.5 MILLIGRAM, QHS
     Route: 048
  8. CYMBALTA [Concomitant]
     Active Substance: DULOXETINE HYDROCHLORIDE
     Dosage: 60 MILLIGRAM, QD
     Route: 048
  9. FOLVITE [Concomitant]
     Active Substance: FOLIC ACID
     Dosage: 1 MILLIGRAM, QD
     Route: 048
  10. LAMOTRIGINE [Concomitant]
     Active Substance: LAMOTRIGINE
     Dosage: 200 MILLIGRAM, QD
     Route: 048
  11. LITHIUM CARBONATE [Concomitant]
     Active Substance: LITHIUM CARBONATE
     Dosage: 300 MILLIGRAM, BID
     Route: 048
  12. REMERON [Concomitant]
     Active Substance: MIRTAZAPINE
     Dosage: 7.5 MILLIGRAM, QHS
     Route: 048
  13. MINERALS\VITAMINS [Concomitant]
     Active Substance: MINERALS\VITAMINS
     Dosage: UNK, QD
     Route: 048
  14. VITAMIN A [Concomitant]
     Active Substance: VITAMIN A
     Dosage: UNK
     Route: 048
  15. NORVASC [Concomitant]
     Active Substance: AMLODIPINE BESYLATE
     Dosage: 10 MILLIGRAM, QD
     Route: 048

REACTIONS (2)
  - Fall [Recovered/Resolved]
  - Pneumonia [Unknown]

NARRATIVE: CASE EVENT DATE: 20210227
